FAERS Safety Report 4613547-X (Version None)
Quarter: 2005Q1

REPORT INFORMATION
  Report Type: 
  Country: None (occurrence: None)
  Receive Date: 20050321
  Receipt Date: 20050310
  Transmission Date: 20050727
  Serious: Yes (Hospitalization)
  Sender: FDA-Public Use
  Company Number: GXKR2005DE00736

PATIENT
  Age: 79 Year
  Sex: Female

DRUGS (6)
  1. METFORMIN (NGX) [Suspect]
     Indication: DIABETES MELLITUS
     Dosage: 850 MG, BID
     Route: 065
  2. QUINALAPRIL [Suspect]
     Indication: HYPERTENSION
     Dosage: UNK, UNK
     Route: 065
  3. HYDROCHLOROTHIAZIDE [Interacting]
     Indication: HYPERTENSION
     Dosage: UNK, UNK
     Route: 065
  4. NITROFURANTOIN [Concomitant]
     Indication: NEUROMYOPATHY
     Dosage: 50 MG/DAY
     Route: 065
  5. PYRIDOXINE HYDROCHLORIDE [Concomitant]
     Indication: NEUROMYOPATHY
     Dosage: UNK, UNK
     Route: 065
  6. DICLOFENAC T23132+SRTAB [Suspect]
     Route: 065

REACTIONS (7)
  - ANOREXIA [None]
  - DIZZINESS [None]
  - DRUG INTERACTION [None]
  - DYSARTHRIA [None]
  - HYPOGLYCAEMIA [None]
  - NAUSEA [None]
  - STUPOR [None]
